FAERS Safety Report 6305566-2 (Version None)
Quarter: 2009Q3

REPORT INFORMATION
  Report Type: 
  Country: None (occurrence: None)
  Receive Date: 20090807
  Receipt Date: 20090725
  Transmission Date: 20100115
  Serious: Yes (Other)
  Sender: FDA-Public Use
  Company Number: 2009ID004591

PATIENT
  Age: 41 Year
  Sex: Female

DRUGS (3)
  1. PALONOSETRON HCI(PALONOSETRON HYDROCHLORIDE) INTRAVENOUS, 2.5MG [Suspect]
     Indication: PROPHYLAXIS OF NAUSEA AND VOMITING
     Dosage: 0.25, SINGLE, IV DRIP
     Route: 041
     Dates: start: 20090701, end: 20090701
  2. PACLITAXEL [Concomitant]
  3. EPIRUBICIN [Concomitant]

REACTIONS (1)
  - GRAND MAL CONVULSION [None]
